FAERS Safety Report 4814707-5 (Version None)
Quarter: 2005Q4

REPORT INFORMATION
  Report Type: 
  Country: None (occurrence: None)
  Receive Date: 20051028
  Receipt Date: 20050811
  Transmission Date: 20060501
  Serious: Yes (Hospitalization)
  Sender: FDA-Public Use
  Company Number: PHNU2005DE02851

PATIENT
  Sex: Male
  Weight: 68 kg

DRUGS (11)
  1. OPIAT [Concomitant]
     Dates: start: 20050101, end: 20050101
  2. PANTOZOL [Concomitant]
     Indication: REFLUX OESOPHAGITIS
     Dosage: 20 MG/D
     Route: 048
     Dates: start: 20020701
  3. BENAZEPRIL HCL [Suspect]
     Indication: HYPERTENSION
     Dosage: 10 MG/D
     Route: 048
     Dates: end: 20050712
  4. ALLOPURINOL [Concomitant]
     Indication: GOUT
     Dosage: 300 MG/D
     Route: 048
     Dates: start: 20030901
  5. QUERTO [Concomitant]
     Indication: HYPERTENSION
     Dosage: 5 MG/D
     Route: 048
     Dates: start: 20000101
  6. LOCOL [Concomitant]
     Indication: HYPERCHOLESTEROLAEMIA
     Dosage: 20 MG/D
     Route: 048
     Dates: start: 20000101
  7. NORVASC [Concomitant]
     Indication: HYPERTENSION
     Dosage: 5 MG/D
     Route: 048
     Dates: start: 20020401
  8. ATACAND HCT [Concomitant]
     Indication: HYPERTENSION
     Route: 048
  9. MILGAMMA NA [Concomitant]
     Indication: NEUROPATHY
     Dosage: 80 MG/D
     Route: 048
     Dates: start: 20030101
  10. LIPONSAEURE [Concomitant]
     Indication: NEUROPATHY
     Dosage: 600 MG/D
     Route: 048
     Dates: start: 20030401
  11. METOCLOPRAMID [Concomitant]

REACTIONS (1)
  - HICCUPS [None]
